FAERS Safety Report 17077209 (Version 1)
Quarter: 2019Q4

REPORT INFORMATION
  Report Type: Report from Study
  Country: JP (occurrence: JP)
  Receive Date: 20191126
  Receipt Date: 20191126
  Transmission Date: 20200122
  Serious: Yes (Hospitalization, Other)
  Sender: FDA-Public Use
  Company Number: JP-GLAXOSMITHKLINE-JP2019JPN205896

PATIENT
  Age: 5 Decade
  Sex: Female
  Weight: 50 kg

DRUGS (18)
  1. PARIET TABLET [Concomitant]
     Indication: PROPHYLAXIS AGAINST GASTROINTESTINAL ULCER
     Dosage: UNK
  2. ALFAROL CAPSULE [Concomitant]
     Indication: OSTEOPOROSIS PROPHYLAXIS
     Dosage: UNK
  3. HIRUDOID SOFT OINTMENT [Concomitant]
     Dosage: UNK
  4. MYSLEE TABLETS [Concomitant]
     Dosage: UNK
  5. LOXONIN TAPE [Concomitant]
     Active Substance: LOXOPROFEN SODIUM DIHYDRATE
     Dosage: UNK
  6. EDIROL CAPSULE [Concomitant]
     Indication: OSTEOPOROSIS PROPHYLAXIS
     Dosage: UNK
  7. VITAMEDIN COMBINATION CAPSULES [Concomitant]
     Dosage: UNK
  8. DEPAS TABLETS [Concomitant]
     Active Substance: ETIZOLAM
     Dosage: UNK
  9. ASPARA-CA TABLETS [Concomitant]
     Indication: OSTEOPOROSIS PROPHYLAXIS
     Dosage: UNK
  10. MUCOSTA [Concomitant]
     Active Substance: REBAMIPIDE
     Indication: PROPHYLAXIS AGAINST GASTROINTESTINAL ULCER
     Dosage: UNK
  11. PREDONINE [Concomitant]
     Active Substance: PREDNISOLONE
     Indication: SYSTEMIC LUPUS ERYTHEMATOSUS
     Dosage: 5 MG, 1D
     Dates: start: 20181019
  12. HYPEN [Concomitant]
     Dosage: UNK
  13. MIGSIS [Concomitant]
     Active Substance: LOMERIZINE HYDROCHLORIDE
     Indication: MIGRAINE PROPHYLAXIS
     Dosage: UNK
  14. HYALEIN MINI OPHTHALMIC SOLUTION [Concomitant]
     Dosage: UNK
  15. HIRUDOID LOTION [Concomitant]
     Dosage: UNK
  16. BELIMUMAB SUBCUTANEOUS [Suspect]
     Active Substance: BELIMUMAB
     Indication: SYSTEMIC LUPUS ERYTHEMATOSUS RASH
  17. BELIMUMAB SUBCUTANEOUS [Suspect]
     Active Substance: BELIMUMAB
     Indication: SYSTEMIC LUPUS ERYTHEMATOSUS
     Dosage: 200 MG, WE
     Route: 058
     Dates: start: 20181019, end: 20190411
  18. BAYASPIRIN TABLETS [Concomitant]
     Indication: THROMBOSIS PROPHYLAXIS
     Dosage: UNK

REACTIONS (2)
  - Nephritis bacterial [Unknown]
  - Glomerulonephritis [Recovered/Resolved]

NARRATIVE: CASE EVENT DATE: 20190418
